FAERS Safety Report 6458841-5 (Version None)
Quarter: 2009Q4

REPORT INFORMATION
  Report Type: 
  Country: None (occurrence: None)
  Receive Date: 20091125
  Receipt Date: 20091125
  Transmission Date: 20100525
  Serious: Yes (Disabling)
  Sender: FDA-Public Use
  Company Number: None

PATIENT
  Sex: Female
  Weight: 51.7101 kg

DRUGS (1)
  1. LIPITOR [Suspect]

REACTIONS (2)
  - ABASIA [None]
  - DEPRESSED LEVEL OF CONSCIOUSNESS [None]
